FAERS Safety Report 15036521 (Version 2)
Quarter: 2018Q3

REPORT INFORMATION
  Report Type: Spontaneous
  Country: US (occurrence: US)
  Receive Date: 20180620
  Receipt Date: 20180816
  Transmission Date: 20181010
  Serious: Yes (Other)
  Sender: FDA-Public Use
  Company Number: US-PFIZER INC-2018244920

PATIENT
  Age: 88 Year
  Sex: Female
  Weight: 63.49 kg

DRUGS (3)
  1. LATANOPROST. [Suspect]
     Active Substance: LATANOPROST
     Indication: OCULAR HYPERTENSION
     Dosage: 2 GTT, 1X/DAY (1 DROP IN EACH EYE AT NIGHT)
     Route: 047
  2. TIMOLOL. [Concomitant]
     Active Substance: TIMOLOL
     Dosage: UNK
  3. LATANOPROST. [Suspect]
     Active Substance: LATANOPROST
     Dosage: UNK

REACTIONS (7)
  - Incorrect dosage administered [Unknown]
  - Weight fluctuation [Unknown]
  - Blood pressure increased [Unknown]
  - Appendicitis perforated [Unknown]
  - Increased appetite [Unknown]
  - Fatigue [Unknown]
  - Appendix disorder [Unknown]
